FAERS Safety Report 14341262 (Version 1)
Quarter: 2018Q1

REPORT INFORMATION
  Report Type: Spontaneous
  Country: CN (occurrence: CN)
  Receive Date: 20180102
  Receipt Date: 20180102
  Transmission Date: 20180509
  Serious: Yes (Death, Life-Threatening, Hospitalization, Other)
  Sender: FDA-Public Use
  Company Number: CN-ACCORD-062441

PATIENT
  Age: 53 Year
  Sex: Female

DRUGS (5)
  1. METHOTREXATE. [Suspect]
     Active Substance: METHOTREXATE
     Indication: CONNECTIVE TISSUE DISORDER
     Dosage: OTHER DOSE ON DAY 2, 5 AT 25 MG
  2. DEXAMETHASONE. [Suspect]
     Active Substance: DEXAMETHASONE
     Indication: CONNECTIVE TISSUE DISORDER
     Dosage: DAY 1-8
  3. PIRARUBICIN [Suspect]
     Active Substance: PIRARUBICIN
     Indication: CONNECTIVE TISSUE DISORDER
     Dosage: DAY 1
  4. CYCLOPHOSPHAMIDE. [Suspect]
     Active Substance: CYCLOPHOSPHAMIDE
     Indication: CONNECTIVE TISSUE DISORDER
     Dosage: DAY 1
  5. VINDESINE [Suspect]
     Active Substance: VINDESINE
     Indication: CONNECTIVE TISSUE DISORDER
     Dosage: DAY 1

REACTIONS (3)
  - Bone marrow failure [Unknown]
  - Plasmablastic lymphoma [Not Recovered/Not Resolved]
  - Infection [Unknown]
